FAERS Safety Report 8645041 (Version 2)
Quarter: 2012Q4

REPORT INFORMATION
  Report Type: 
  Country: ES (occurrence: ES)
  Receive Date: 20120702
  Receipt Date: 20121231
  Transmission Date: 20130627
  Serious: Yes (Hospitalization, Other)
  Sender: FDA-Public Use
  Company Number: ES-ELI_LILLY_AND_COMPANY-ES201206007148

PATIENT
  Age: 71 Year
  Sex: Male

DRUGS (2)
  1. FORSTEO [Suspect]
     Dosage: 20 ug, qd
     Route: 058
     Dates: start: 20111015
  2. FORSTEO [Suspect]
     Dosage: 20 ug, qd
     Route: 058
     Dates: start: 20121015

REACTIONS (3)
  - Renal colic [Unknown]
  - Pain [Not Recovered/Not Resolved]
  - Nephrolithiasis [Unknown]
